FAERS Safety Report 17398624 (Version 2)
Quarter: 2022Q1

REPORT INFORMATION
  Report Type: Spontaneous
  Country: CA (occurrence: CA)
  Receive Date: 20200210
  Receipt Date: 20220221
  Transmission Date: 20220423
  Serious: Yes (Hospitalization, Other)
  Sender: FDA-Public Use
  Company Number: CA-PURDUE PHARMA-CAN-2020-0010587

PATIENT
  Age: 64 Year
  Sex: Male

DRUGS (10)
  1. MORPHINE SULFATE [Suspect]
     Active Substance: MORPHINE SULFATE
     Indication: Product used for unknown indication
     Dosage: UNK
     Route: 065
  2. MORPHINE SULFATE [Suspect]
     Active Substance: MORPHINE SULFATE
     Indication: Product used for unknown indication
     Dosage: UNK
     Route: 065
  3. CODEINE [Suspect]
     Active Substance: CODEINE
     Indication: Product used for unknown indication
     Dosage: UNK
     Route: 065
  4. CODEINE [Suspect]
     Active Substance: CODEINE
     Indication: Product used for unknown indication
     Dosage: UNK
     Route: 065
  5. SANDOSTATIN [Suspect]
     Active Substance: OCTREOTIDE ACETATE
     Indication: Short-bowel syndrome
     Dosage: 40 MG, MONTHLY
     Route: 030
  6. SANDOSTATIN [Suspect]
     Active Substance: OCTREOTIDE ACETATE
     Dosage: 30 MG, 1 EVERY 1 MONTH
     Route: 030
  7. SANDOSTATIN [Suspect]
     Active Substance: OCTREOTIDE ACETATE
     Dosage: 20 MG, 1 EVERY 1 MONTH
     Route: 030
  8. SANDOSTATIN [Suspect]
     Active Substance: OCTREOTIDE ACETATE
     Dosage: UNK, 3 EVERY 1 DAY
     Route: 058
  9. SANDOSTATIN [Suspect]
     Active Substance: OCTREOTIDE ACETATE
     Dosage: UNK, 3 EVERY 1 DAY
     Route: 058
  10. SANDOSTATIN [Suspect]
     Active Substance: OCTREOTIDE ACETATE
     Dosage: UNK
     Route: 065

REACTIONS (27)
  - Bacterial test positive [Unknown]
  - Blood pressure increased [Unknown]
  - Catheter site infection [Unknown]
  - Cortisol decreased [Unknown]
  - Dehydration [Unknown]
  - Drug hypersensitivity [Unknown]
  - Electrolyte imbalance [Unknown]
  - Gastrointestinal bacterial infection [Unknown]
  - Gastrointestinal disorder [Unknown]
  - Gastrooesophageal reflux disease [Unknown]
  - Infection [Unknown]
  - Intestinal obstruction [Unknown]
  - Kidney infection [Unknown]
  - Malaise [Unknown]
  - Pneumonia [Unknown]
  - Product use in unapproved indication [Unknown]
  - Respiratory disorder [Unknown]
  - Vomiting [Unknown]
  - Contusion [Unknown]
  - Fall [Unknown]
  - Fungal infection [Unknown]
  - Immunodeficiency [Unknown]
  - Pain in extremity [Unknown]
  - Upper limb fracture [Unknown]
  - Adrenal disorder [Unknown]
  - General physical health deterioration [Unknown]
  - Red blood cell count decreased [Unknown]
